FAERS Safety Report 9236072 (Version 1)
Quarter: 2013Q2

REPORT INFORMATION
  Report Type: Spontaneous
  Country: US (occurrence: US)
  Receive Date: 20130417
  Receipt Date: 20130417
  Transmission Date: 20140414
  Serious: No
  Sender: FDA-Public Use
  Company Number: US-ABBOTT-12P-163-1019177-00

PATIENT
  Age: 73 Year
  Sex: Female

DRUGS (1)
  1. ZEMPLAR [Suspect]
     Indication: SECONDARY HYPERTHYROIDISM
     Dosage: 1 MCG

REACTIONS (1)
  - Arthralgia [Not Recovered/Not Resolved]
